FAERS Safety Report 8504079-7 (Version None)
Quarter: 2012Q3

REPORT INFORMATION
  Report Type: 
  Country: None (occurrence: None)
  Receive Date: 20120711
  Receipt Date: 20120705
  Transmission Date: 20120928
  Serious: Yes (Hospitalization)
  Sender: FDA-Public Use
  Company Number: US-TEVA-347313USA

PATIENT
  Sex: Male

DRUGS (7)
  1. TOPROL-XL [Concomitant]
     Indication: HYPERTENSION
     Route: 048
  2. TRAMADOL HCL [Concomitant]
     Indication: PAIN
     Route: 048
  3. ZOFRAN [Concomitant]
     Indication: NAUSEA
     Route: 048
  4. ZOFRAN [Concomitant]
     Indication: VOMITING
  5. QNASL [Suspect]
     Indication: EAR CONGESTION
     Dosage: 2 SPRAYS EN DAILY
     Dates: start: 20120601
  6. LORAZEPAM [Concomitant]
     Indication: MUSCLE SPASMS
     Route: 048
  7. SUGAR PILLS [Concomitant]
     Indication: HYPOGLYCAEMIA
     Route: 048

REACTIONS (5)
  - DIZZINESS [None]
  - HYPERTENSION [None]
  - THROAT IRRITATION [None]
  - IRRITABILITY [None]
  - NASAL DISCOMFORT [None]
